FAERS Safety Report 14665010 (Version 1)
Quarter: 2018Q1

REPORT INFORMATION
  Report Type: Spontaneous
  Country: US (occurrence: US)
  Receive Date: 20180319
  Receipt Date: 20180319
  Transmission Date: 20180509
  Serious: No
  Sender: FDA-Public Use
  Company Number: None

PATIENT
  Age: 44 Year
  Weight: 54 kg

DRUGS (2)
  1. B12 SUPPLEMENTS [Concomitant]
  2. LOSARTAN. [Suspect]
     Active Substance: LOSARTAN
     Indication: HYPERTENSION
     Route: 048

REACTIONS (8)
  - Pain in extremity [None]
  - Asthenia [None]
  - Influenza like illness [None]
  - Myalgia [None]
  - Loss of personal independence in daily activities [None]
  - Fatigue [None]
  - Feeling cold [None]
  - Arthralgia [None]

NARRATIVE: CASE EVENT DATE: 20180314
